FAERS Safety Report 18510748 (Version 1)
Quarter: 2020Q4

REPORT INFORMATION
  Report Type: Spontaneous
  Country: US (occurrence: US)
  Receive Date: 20201117
  Receipt Date: 20201117
  Transmission Date: 20210114
  Serious: No
  Sender: FDA-Public Use
  Company Number: US-ALLERGAN-2004314US

PATIENT
  Age: 69 Year
  Sex: Female

DRUGS (2)
  1. COMBIGAN [Suspect]
     Active Substance: BRIMONIDINE TARTRATE\TIMOLOL MALEATE
     Indication: GLAUCOMA
     Dosage: 2 GTT, BID
     Route: 047
     Dates: start: 20200125, end: 20200126
  2. LUMIGAN [Concomitant]
     Active Substance: BIMATOPROST
     Indication: GLAUCOMA
     Dosage: UNK
     Route: 047

REACTIONS (9)
  - Dry eye [Recovered/Resolved]
  - Product container issue [Unknown]
  - Condition aggravated [Recovered/Resolved]
  - Administration site reaction [Recovered/Resolved]
  - Eye pain [Recovered/Resolved]
  - Nasopharyngitis [Recovered/Resolved]
  - Erythema of eyelid [Recovered/Resolved]
  - Rhinorrhoea [Unknown]
  - Ocular hyperaemia [Recovered/Resolved]

NARRATIVE: CASE EVENT DATE: 20200125
